FAERS Safety Report 20208677 (Version 2)
Quarter: 2022Q1

REPORT INFORMATION
  Report Type: Spontaneous
  Country: US (occurrence: US)
  Receive Date: 20211220
  Receipt Date: 20220125
  Transmission Date: 20220423
  Serious: Yes (Other)
  Sender: FDA-Public Use
  Company Number: US-PFIZER INC-202101742521

PATIENT
  Age: 70 Year
  Sex: Female

DRUGS (1)
  1. XELJANZ XR [Suspect]
     Active Substance: TOFACITINIB CITRATE
     Indication: Rheumatoid arthritis
     Dosage: 11 MG, DAILY
     Route: 048
     Dates: start: 2019

REACTIONS (7)
  - Rheumatoid arthritis [Unknown]
  - Middle insomnia [Unknown]
  - Pain [Unknown]
  - Musculoskeletal stiffness [Unknown]
  - Discouragement [Unknown]
  - Depressed mood [Unknown]
  - Product dose omission in error [Unknown]
